FAERS Safety Report 10340218 (Version 1)
Quarter: 2014Q3

REPORT INFORMATION
  Report Type: Report from Study
  Country: US (occurrence: US)
  Receive Date: 20140724
  Receipt Date: 20140724
  Transmission Date: 20150326
  Serious: Yes (Hospitalization)
  Sender: FDA-Public Use
  Company Number: US-BRISTOL-MYERS SQUIBB COMPANY-21212600

PATIENT
  Age: 58 Year
  Sex: Female
  Weight: 60.1 kg

DRUGS (1)
  1. IPILIMUMAB [Suspect]
     Active Substance: IPILIMUMAB
     Indication: ADENOCARCINOMA OF THE CERVIX
     Dosage: TOTAL DOSE:600 MG?LAST DOSE ON 30JUN14?OVER 90 MINS ON D1?MAINT:Q12 WKS
     Route: 042
     Dates: start: 20140610

REACTIONS (3)
  - Vomiting [Recovered/Resolved]
  - Dehydration [Recovered/Resolved]
  - Nausea [Recovered/Resolved]

NARRATIVE: CASE EVENT DATE: 20140711
